FAERS Safety Report 18883675 (Version 3)
Quarter: 2021Q3

REPORT INFORMATION
  Report Type: Report from Study
  Country: IT (occurrence: IT)
  Receive Date: 20210211
  Receipt Date: 20210923
  Transmission Date: 20211014
  Serious: Yes (Death, Hospitalization)
  Sender: FDA-Public Use
  Company Number: IT-INCYTE CORPORATION-2021IN000950

PATIENT

DRUGS (11)
  1. JAKAVI [Suspect]
     Active Substance: RUXOLITINIB
     Indication: MYELOFIBROSIS
     Dosage: 20 MG, DAILY
     Route: 048
     Dates: start: 20210122, end: 20210123
  2. TRIATEC [RAMIPRIL] [Concomitant]
     Active Substance: RAMIPRIL
     Indication: HYPERTENSION
     Dosage: 2.5 MG
     Route: 048
  3. DELTACORTENE [Concomitant]
     Active Substance: PREDNISONE
     Indication: PROPHYLAXIS
     Dosage: 25 MG, BID
     Route: 065
     Dates: start: 20210210
  4. URBASON [METHYLPREDNISOLONE ACETATE] [Concomitant]
     Active Substance: METHYLPREDNISOLONE ACETATE
     Indication: PRODUCT USED FOR UNKNOWN INDICATION
     Dosage: 20 MG, BID
     Route: 065
     Dates: start: 20210127, end: 20210210
  5. FASTURTEC [Concomitant]
     Active Substance: RASBURICASE
     Indication: PROPHYLAXIS
     Dosage: 1.5 MG
     Route: 065
     Dates: start: 20210128, end: 20210130
  6. NACL [Concomitant]
     Active Substance: SODIUM CHLORIDE
     Indication: PROPHYLAXIS
     Dosage: 1 DF, BID
     Route: 065
     Dates: start: 20210210
  7. INDERAL [Concomitant]
     Active Substance: PROPRANOLOL HYDROCHLORIDE
     Indication: HYPERTENSION
     Dosage: 20 MG
     Route: 065
     Dates: start: 20210210
  8. JAKAVI [Suspect]
     Active Substance: RUXOLITINIB
     Dosage: 20 MG, BID (TWICE DAILY)
     Route: 048
     Dates: start: 20210124, end: 20210207
  9. LANSOPRAZOLE. [Concomitant]
     Active Substance: LANSOPRAZOLE
     Indication: GASTRITIS PROPHYLAXIS
     Dosage: 30 MG
     Route: 048
     Dates: start: 20201223
  10. FOLINA [FOLIC ACID] [Concomitant]
     Active Substance: FOLIC ACID
     Indication: ANAEMIA PROPHYLAXIS
     Dosage: 1 DF
     Route: 048
     Dates: start: 20201223
  11. JAKAVI [Suspect]
     Active Substance: RUXOLITINIB
     Dosage: 10 MG, BID (TWICE DAILY)
     Route: 048
     Dates: start: 20210208

REACTIONS (19)
  - Dyspnoea [Unknown]
  - Pericardial effusion [Recovering/Resolving]
  - Pleural effusion [Recovering/Resolving]
  - Mesenteric vein thrombosis [Unknown]
  - Splenomegaly [Unknown]
  - General physical health deterioration [Fatal]
  - Pulmonary embolism [Unknown]
  - Spinal compression fracture [Unknown]
  - Osteolysis [Not Recovered/Not Resolved]
  - Splenic vein thrombosis [Unknown]
  - Vena cava thrombosis [Not Recovered/Not Resolved]
  - Thrombosis [Unknown]
  - Jugular vein thrombosis [Unknown]
  - Respiratory failure [Not Recovered/Not Resolved]
  - COVID-19 [Not Recovered/Not Resolved]
  - Osteoarthritis [Unknown]
  - Brachiocephalic vein thrombosis [Unknown]
  - Haematoma [Unknown]
  - Ascites [Recovering/Resolving]

NARRATIVE: CASE EVENT DATE: 20210127
